FAERS Safety Report 6018285-7 (Version None)
Quarter: 2008Q4

REPORT INFORMATION
  Report Type: 
  Country: None (occurrence: None)
  Receive Date: 20081223
  Receipt Date: 20081216
  Transmission Date: 20090506
  Serious: Yes (Death, Hospitalization)
  Sender: FDA-Public Use
  Company Number: PHHY2008KR10355

PATIENT
  Sex: Male

DRUGS (4)
  1. EXJADE [Suspect]
     Indication: IRON OVERLOAD
     Dosage: 1250 MG, QD
     Route: 048
     Dates: start: 20080227, end: 20080520
  2. CIPROFLOXACIN HCL [Concomitant]
     Indication: LEUKOPENIA
     Dosage: 1000 MG, QD
     Dates: start: 20071205
  3. ACYCLOVIR [Concomitant]
     Indication: LEUKOPENIA
     Dosage: 800 MG, QD
     Dates: start: 20071205
  4. PROGRAF [Concomitant]
     Indication: APLASTIC ANAEMIA
     Dosage: 2 MG, QD
     Dates: start: 20061101, end: 20080101

REACTIONS (8)
  - BLOOD CREATININE INCREASED [None]
  - BLOOD UREA INCREASED [None]
  - HAEMOPTYSIS [None]
  - INFECTION [None]
  - NEPHROLITHIASIS [None]
  - RENAL FAILURE ACUTE [None]
  - RESPIRATORY FAILURE [None]
  - SEPSIS [None]
